FAERS Safety Report 8781163 (Version 2)
Quarter: 2012Q4

REPORT INFORMATION
  Report Type: 
  Country: DE (occurrence: DE)
  Receive Date: 20120913
  Receipt Date: 20120913
  Transmission Date: 20130627
  Serious: Yes (Other)
  Sender: FDA-Public Use
  Company Number: PHHY2012DE062946

PATIENT
  Age: 44 Year
  Sex: Female

DRUGS (2)
  1. EXTAVIA [Suspect]
     Indication: MULTIPLE SCLEROSIS
     Dosage: 1 ml, QOD
     Route: 058
     Dates: start: 20120711
  2. AMITRIPTYLINE [Concomitant]
     Indication: SLEEP DISORDER
     Route: 048

REACTIONS (3)
  - Infection [Unknown]
  - Mental disorder [Not Recovered/Not Resolved]
  - Vomiting [Recovered/Resolved]
